FAERS Safety Report 20318699 (Version 1)
Quarter: 2022Q1

REPORT INFORMATION
  Report Type: Report from Study
  Country: IT (occurrence: IT)
  Receive Date: 20220110
  Receipt Date: 20220110
  Transmission Date: 20220423
  Serious: Yes (Other)
  Sender: FDA-Public Use
  Company Number: None

PATIENT
  Age: 71 Year
  Sex: Male
  Weight: 173 kg

DRUGS (7)
  1. FLUOROURACIL [Suspect]
     Active Substance: FLUOROURACIL
     Indication: Colon cancer recurrent
     Dosage: 3204 MG, CYCLE/24-AUG-2017
     Route: 042
     Dates: end: 20171019
  2. ONIVYDE [Suspect]
     Active Substance: IRINOTECAN HYDROCHLORIDE
     Indication: Colon cancer recurrent
     Dosage: 225 MG, CYCLE/ START DATE: 20-JUL-2017
     Route: 042
     Dates: end: 20171214
  3. ONIVYDE [Suspect]
     Active Substance: IRINOTECAN HYDROCHLORIDE
     Dosage: UNK
  4. ERBITUX [Suspect]
     Active Substance: CETUXIMAB
     Indication: Colon cancer recurrent
     Dosage: 445 MG, CYCLE/ START DATE: 13-JUL-2017
     Route: 042
     Dates: end: 20180207
  5. LEVOLEUCOVORIN [Concomitant]
     Active Substance: LEVOLEUCOVORIN
     Indication: Colon cancer recurrent
     Dosage: 356 MG, CYCLE/ START DATE: 24-AUG-2017
     Route: 042
     Dates: end: 20171019
  6. LEVOLEUCOVORIN [Concomitant]
     Active Substance: LEVOLEUCOVORIN
     Dosage: 356 MG, CYCLE
  7. LEVOLEUCOVORIN [Concomitant]
     Active Substance: LEVOLEUCOVORIN
     Dosage: UNK, CYCLE

REACTIONS (3)
  - Thrombocytopenia [Recovering/Resolving]
  - Neutropenia [Recovering/Resolving]
  - Off label use [Recovering/Resolving]

NARRATIVE: CASE EVENT DATE: 20170101
